FAERS Safety Report 13591617 (Version 1)
Quarter: 2017Q2

REPORT INFORMATION
  Report Type: Spontaneous
  Country: US (occurrence: US)
  Receive Date: 20170529
  Receipt Date: 20170529
  Transmission Date: 20170830
  Serious: No
  Sender: FDA-Public Use
  Company Number: US-PFIZER INC-2017235870

PATIENT
  Age: 95 Year
  Sex: Female
  Weight: 59 kg

DRUGS (1)
  1. LYRICA [Suspect]
     Active Substance: PREGABALIN
     Dosage: 1 DF, 1X/DAY, AT NIGHT

REACTIONS (1)
  - Peripheral swelling [Unknown]
